FAERS Safety Report 7142041-X (Version None)
Quarter: 2010Q4

REPORT INFORMATION
  Report Type: 
  Country: None (occurrence: None)
  Receive Date: 20101207
  Receipt Date: 20101129
  Transmission Date: 20110411
  Serious: Yes (Other)
  Sender: FDA-Public Use
  Company Number: B0677418A

PATIENT
  Sex: Female

DRUGS (5)
  1. ZEFIX [Suspect]
     Indication: HEPATITIS B
     Dosage: 100MG PER DAY
     Route: 048
     Dates: start: 20050325
  2. PREDONINE [Suspect]
     Route: 048
  3. METHYCOBAL [Suspect]
     Route: 048
  4. ADETPHOS [Suspect]
     Route: 048
  5. MUCOSTA [Suspect]
     Route: 048

REACTIONS (2)
  - DEAFNESS [None]
  - DRUG EXPOSURE DURING PREGNANCY [None]
